FAERS Safety Report 19938059 (Version 4)
Quarter: 2023Q4

REPORT INFORMATION
  Report Type: Other
  Country: US (occurrence: None)
  Receive Date: 20211011
  Receipt Date: 20231124
  Transmission Date: 20240110
  Serious: Yes (Other)
  Sender: FDA-Public Use
  Company Number: US-ROCHE-2774494

PATIENT
  Sex: Male
  Weight: 118.04 kg

DRUGS (21)
  1. ZELBORAF [Suspect]
     Active Substance: VEMURAFENIB
     Indication: Hairy cell leukaemia
     Route: 048
     Dates: start: 202010
  2. ZELBORAF [Suspect]
     Active Substance: VEMURAFENIB
     Indication: Hairy cell leukaemia
     Dosage: TAKE 2 TABLETS BY MOUTH EVERY 12 HOURS DAILY
     Route: 048
     Dates: start: 20201021
  3. ZELBORAF [Suspect]
     Active Substance: VEMURAFENIB
     Route: 048
     Dates: start: 202011
  4. ZELBORAF [Suspect]
     Active Substance: VEMURAFENIB
     Route: 048
  5. AZELASTINE [Concomitant]
     Active Substance: AZELASTINE\AZELASTINE HYDROCHLORIDE
  6. BETAMETHASONE DIPROPIONATE [Concomitant]
     Active Substance: BETAMETHASONE DIPROPIONATE
  7. CELECOXIB [Concomitant]
     Active Substance: CELECOXIB
  8. CLINDAMYCIN [Concomitant]
     Active Substance: CLINDAMYCIN
  9. CLONAZEPAM [Concomitant]
     Active Substance: CLONAZEPAM
  10. DEXLANSOPRAZOLE [Concomitant]
     Active Substance: DEXLANSOPRAZOLE
  11. DOXYCYCLINE [Concomitant]
     Active Substance: DOXYCYCLINE
  12. ESOMEPRAZOLE [Concomitant]
     Active Substance: ESOMEPRAZOLE
  13. FLUTICASONE [Concomitant]
     Active Substance: FLUTICASONE
  14. FUROSEMIDE [Concomitant]
     Active Substance: FUROSEMIDE
  15. ACETAMINOPHEN\HYDROCODONE [Concomitant]
     Active Substance: ACETAMINOPHEN\HYDROCODONE
  16. LEVOTHYROXINE [Concomitant]
     Active Substance: LEVOTHYROXINE
  17. MAGNESIUM OXIDE [Concomitant]
     Active Substance: MAGNESIUM OXIDE
  18. METOPROLOL TARTRATE [Concomitant]
     Active Substance: METOPROLOL TARTRATE
  19. MORPHINE [Concomitant]
     Active Substance: MORPHINE
  20. NITROGLYCERIN [Concomitant]
     Active Substance: NITROGLYCERIN
  21. ONDANSETRON [Concomitant]
     Active Substance: ONDANSETRON

REACTIONS (16)
  - Arrhythmia [Unknown]
  - Fatigue [Not Recovered/Not Resolved]
  - Oedema peripheral [Unknown]
  - Heart rate increased [Unknown]
  - Skin papilloma [Unknown]
  - COVID-19 [Unknown]
  - Pyrexia [Recovered/Resolved]
  - Blood pressure abnormal [Unknown]
  - Accidental overdose [Unknown]
  - Dyspnoea [Not Recovered/Not Resolved]
  - Arthralgia [Unknown]
  - Off label use [Unknown]
  - Oedema [Unknown]
  - Vascular neoplasm [Unknown]
  - Neoplasm skin [Unknown]
  - Nausea [Unknown]

NARRATIVE: CASE EVENT DATE: 20201001
